FAERS Safety Report 9411186 (Version 1)
Quarter: 2013Q3

REPORT INFORMATION
  Report Type: Spontaneous
  Country: US (occurrence: US)
  Receive Date: 20130722
  Receipt Date: 20130722
  Transmission Date: 20140515
  Serious: Yes (Death)
  Sender: FDA-Public Use
  Company Number: US-MYLANLABS-2013S1015251

PATIENT
  Age: 5 Decade
  Sex: Male

DRUGS (4)
  1. LEVETIRACETAM TABLETS [Suspect]
     Dates: start: 2009
  2. LEVETIRACETAM TABLETS [Suspect]
     Dates: start: 2009
  3. LEVETIRACETAM TABLETS [Suspect]
     Dates: end: 201011
  4. LEVETIRACETAM TABLETS [Suspect]
     Dates: end: 201011

REACTIONS (2)
  - Convulsion [Fatal]
  - Road traffic accident [Fatal]
